FAERS Safety Report 12179055 (Version 1)
Quarter: 2016Q1

REPORT INFORMATION
  Report Type: Report from Study
  Country: DO (occurrence: DO)
  Receive Date: 20160315
  Receipt Date: 20160315
  Transmission Date: 20160526
  Serious: Yes (Other)
  Sender: FDA-Public Use
  Company Number: PHHY2016DO033083

PATIENT
  Age: 91 Year
  Sex: Female

DRUGS (1)
  1. CO-DIOVAN [Suspect]
     Active Substance: HYDROCHLOROTHIAZIDE\VALSARTAN
     Indication: PRODUCT USED FOR UNKNOWN INDICATION
     Dosage: 1 DF (160/12.5 OT)  , UNK
     Route: 065

REACTIONS (4)
  - Chest discomfort [Unknown]
  - Angina pectoris [Unknown]
  - Blood pressure increased [Unknown]
  - Chest pain [Unknown]
